FAERS Safety Report 7214892-4 (Version None)
Quarter: 2011Q1

REPORT INFORMATION
  Report Type: 
  Country: None (occurrence: None)
  Receive Date: 20110107
  Receipt Date: 20100426
  Transmission Date: 20110831
  Serious: No
  Sender: FDA-Public Use
  Company Number: A0856739A

PATIENT
  Age: 64 Year
  Sex: Female

DRUGS (6)
  1. ARIMIDEX [Concomitant]
  2. LEVOTHYROXINE SODIUM [Concomitant]
  3. GLUCOPHAGE [Concomitant]
  4. LOVAZA [Suspect]
     Dosage: 2CAP TWICE PER DAY
     Route: 048
  5. CALCIUM [Concomitant]
  6. HYZAAR [Concomitant]

REACTIONS (1)
  - LOW DENSITY LIPOPROTEIN INCREASED [None]
